FAERS Safety Report 5523669-7 (Version None)
Quarter: 2007Q4

REPORT INFORMATION
  Report Type: 
  Country: None (occurrence: None)
  Receive Date: 20071121
  Receipt Date: 20071116
  Transmission Date: 20080405
  Serious: Yes (Life-Threatening, Hospitalization)
  Sender: FDA-Public Use
  Company Number: JP-ASTRAZENECA-2007SE05546

PATIENT
  Age: 27832 Day
  Sex: Female
  Weight: 47 kg

DRUGS (15)
  1. BLOPRESS [Suspect]
     Indication: HYPERTENSION
     Route: 048
     Dates: start: 20061213, end: 20070409
  2. BLOPRESS [Suspect]
     Route: 048
     Dates: start: 20070426, end: 20071001
  3. FOSAMAC [Suspect]
     Indication: OSTEOPOROSIS
     Route: 048
     Dates: start: 20070510, end: 20070927
  4. TAKEPRON OD [Concomitant]
     Route: 048
     Dates: end: 20061216
  5. TAKEPRON OD [Concomitant]
     Route: 048
     Dates: start: 20070719
  6. ASPIRIN [Concomitant]
     Route: 048
  7. MAGMITT [Concomitant]
     Route: 048
     Dates: start: 20061206, end: 20070410
  8. MAGMITT [Concomitant]
     Route: 048
     Dates: start: 20070512
  9. ADALAT [Concomitant]
     Route: 048
     Dates: start: 20070719
  10. SEPAMIT R [Concomitant]
     Route: 048
     Dates: end: 20061216
  11. NIFESLOW [Concomitant]
     Route: 048
     Dates: start: 20061216, end: 20070402
  12. NIFESLOW [Concomitant]
     Route: 048
     Dates: start: 20070427, end: 20070718
  13. OVULANZE [Concomitant]
     Route: 048
     Dates: start: 20061216, end: 20070402
  14. OVULANZE [Concomitant]
     Route: 048
     Dates: start: 20070512, end: 20070718
  15. MAGLAX [Concomitant]
     Route: 048
     Dates: start: 20070410, end: 20070511

REACTIONS (3)
  - CAROTID ARTERY STENOSIS [None]
  - CEREBRAL INFARCTION [None]
  - HYPERKALAEMIA [None]
